FAERS Safety Report 26122642 (Version 2)
Quarter: 2025Q4

REPORT INFORMATION
  Report Type: Spontaneous
  Country: US (occurrence: US)
  Receive Date: 20251204
  Receipt Date: 20251217
  Transmission Date: 20260118
  Serious: Yes (Other)
  Sender: CSL BEHRING
  Company Number: US-BEH-2025227884

PATIENT
  Age: 47 Year
  Sex: Male

DRUGS (3)
  1. ANDEMBRY [Suspect]
     Active Substance: GARADACIMAB-GXII
     Indication: Hereditary angioedema
     Dosage: 400 MG
     Route: 058
     Dates: start: 202510
  2. ANDEMBRY [Suspect]
     Active Substance: GARADACIMAB-GXII
     Dosage: 200 ML, QMT
     Route: 058
  3. RUCONEST [Concomitant]
     Active Substance: CONESTAT ALFA

REACTIONS (2)
  - Hereditary angioedema [Unknown]
  - Hereditary angioedema [Recovering/Resolving]
